FAERS Safety Report 17326471 (Version 1)
Quarter: 2020Q1

REPORT INFORMATION
  Report Type: Spontaneous
  Country: US (occurrence: US)
  Receive Date: 20200127
  Receipt Date: 20200127
  Transmission Date: 20200409
  Serious: Yes (Other)
  Sender: FDA-Public Use
  Company Number: US-SCA PHARMACEUTICALS-2020SCA00001

PATIENT

DRUGS (4)
  1. OXYTOCIN IN 0.9% SODIUM CHLORIDE [Suspect]
     Active Substance: OXYTOCIN
  2. OXYTOCIN IN 0.9% SODIUM CHLORIDE [Suspect]
     Active Substance: OXYTOCIN
     Dosage: UNK
  3. OXYTOCIN IN 0.9% SODIUM CHLORIDE [Suspect]
     Active Substance: OXYTOCIN
     Dosage: UNK
  4. OXYTOCIN IN 0.9% SODIUM CHLORIDE [Suspect]
     Active Substance: OXYTOCIN
     Dosage: UNK

REACTIONS (3)
  - Product compounding quality issue [Unknown]
  - Product substitution issue [Unknown]
  - Haemorrhage [Unknown]

NARRATIVE: CASE EVENT DATE: 201910
